FAERS Safety Report 6619839-7 (Version None)
Quarter: 2010Q1

REPORT INFORMATION
  Report Type: 
  Country: None (occurrence: None)
  Receive Date: 20100309
  Receipt Date: 20100305
  Transmission Date: 20100710
  Serious: Yes (Life-Threatening, Hospitalization)
  Sender: FDA-Public Use
  Company Number: FR-JNJFOC-20100301878

PATIENT
  Age: 65 Year
  Sex: Female

DRUGS (5)
  1. TAVANIC [Suspect]
     Indication: INFECTION PROPHYLAXIS
     Route: 048
  2. CORDARONE [Interacting]
     Indication: CARDIAC DISORDER
     Route: 048
  3. CARDENSIEL [Interacting]
     Indication: CARDIAC DISORDER
     Route: 065
  4. PREVISCAN (FLUINDIONE) [Concomitant]
     Route: 065
  5. OROKEN [Concomitant]
     Route: 065

REACTIONS (8)
  - CARDIO-RESPIRATORY ARREST [None]
  - DRUG INTERACTION [None]
  - ELECTROCARDIOGRAM QT PROLONGED [None]
  - PNEUMONIA ASPIRATION [None]
  - RENAL FAILURE ACUTE [None]
  - RESPIRATORY DISTRESS [None]
  - SEPTIC SHOCK [None]
  - TORSADE DE POINTES [None]
